FAERS Safety Report 19188265 (Version 1)
Quarter: 2021Q2

REPORT INFORMATION
  Report Type: Not Available
  Country: CO (occurrence: CO)
  Receive Date: 20210427
  Receipt Date: 20210427
  Transmission Date: 20210717
  Serious: Yes (Hospitalization)
  Sender: FDA-Public Use
  Company Number: CO-TEIKOKU PHARMA USA-TPU2021-00494

PATIENT
  Age: 66 Year
  Sex: Female
  Weight: 49 kg

DRUGS (1)
  1. VERSATIS [Suspect]
     Active Substance: LIDOCAINE
     Indication: PAIN
     Route: 061
     Dates: start: 20210303

REACTIONS (2)
  - Bacteraemia [Recovered/Resolved]
  - Arterial occlusive disease [Recovered/Resolved]
